FAERS Safety Report 24293616 (Version 3)
Quarter: 2025Q3

REPORT INFORMATION
  Report Type: Spontaneous
  Country: US (occurrence: US)
  Receive Date: 20240906
  Receipt Date: 20250905
  Transmission Date: 20251021
  Serious: Yes (Hospitalization)
  Sender: DOMPE FARMACEUTICI
  Company Number: US-FARMAPROD-202308-202402-0468

PATIENT
  Age: 70 Year
  Sex: Female
  Weight: 54.79 kg

DRUGS (30)
  1. OXERVATE [Suspect]
     Active Substance: CENEGERMIN-BKBJ
     Indication: Neurotrophic keratopathy
     Route: 047
     Dates: start: 20240207, end: 20240209
  2. OXERVATE [Suspect]
     Active Substance: CENEGERMIN-BKBJ
     Route: 047
     Dates: start: 20240809
  3. OXERVATE [Suspect]
     Active Substance: CENEGERMIN-BKBJ
     Route: 047
     Dates: start: 20241029
  4. OXERVATE [Suspect]
     Active Substance: CENEGERMIN-BKBJ
     Route: 047
  5. AMLODIPINE BESYLATE [Concomitant]
     Active Substance: AMLODIPINE BESYLATE
  6. FIASP [Concomitant]
     Active Substance: INSULIN ASPART
  7. HYOSCYAMINE SULFATE [Concomitant]
     Active Substance: HYOSCYAMINE SULFATE
  8. RHOPRESSA [Concomitant]
     Active Substance: NETARSUDIL MESYLATE
  9. DORZOLAMIDE HYDROCHLORIDE [Concomitant]
     Active Substance: DORZOLAMIDE HYDROCHLORIDE
  10. INSULIN LISPRO [Concomitant]
     Active Substance: INSULIN LISPRO
  11. BUPROPION [Concomitant]
     Active Substance: BUPROPION
  12. HYDROCHLOROTHIAZIDE [Concomitant]
     Active Substance: HYDROCHLOROTHIAZIDE
  13. PRAMIPEXOLE DIHYDROCHLORIDE [Concomitant]
     Active Substance: PRAMIPEXOLE DIHYDROCHLORIDE
  14. LOSARTAN POTASSIUM [Concomitant]
     Active Substance: LOSARTAN POTASSIUM
  15. ONDANSETRON [Concomitant]
     Active Substance: ONDANSETRON
  16. BOTOX [Concomitant]
     Active Substance: ONABOTULINUMTOXINA
  17. ROSUVASTATIN CALCIUM [Concomitant]
     Active Substance: ROSUVASTATIN CALCIUM
  18. RABEPRAZOLE SODIUM [Concomitant]
     Active Substance: RABEPRAZOLE SODIUM
  19. MIRAPEX [Concomitant]
     Active Substance: PRAMIPEXOLE DIHYDROCHLORIDE
  20. NORVASC [Concomitant]
     Active Substance: AMLODIPINE BESYLATE
  21. CRESTOR [Concomitant]
     Active Substance: ROSUVASTATIN CALCIUM
  22. HYDROCHLOROTHIAZIDE [Concomitant]
     Active Substance: HYDROCHLOROTHIAZIDE
  23. XIIDRA [Concomitant]
     Active Substance: LIFITEGRAST
  24. SYSTANE GEL [Concomitant]
  25. UNSPECIFIED INGREDIENT [Concomitant]
     Active Substance: UNSPECIFIED INGREDIENT
  26. REFRESH TEARS [Concomitant]
     Active Substance: CARBOXYMETHYLCELLULOSE SODIUM
  27. CRANBERRY [Concomitant]
     Active Substance: CRANBERRY
  28. ACIPHEX [Concomitant]
     Active Substance: RABEPRAZOLE SODIUM
  29. WELLBUTRIN XL [Concomitant]
     Active Substance: BUPROPION HYDROCHLORIDE
  30. LIDOCAINE [Concomitant]
     Active Substance: LIDOCAINE

REACTIONS (11)
  - Hospitalisation [Unknown]
  - Vision blurred [Unknown]
  - Eye pain [Unknown]
  - Facial pain [Unknown]
  - Photophobia [Unknown]
  - Sinus pain [Unknown]
  - Gait disturbance [Unknown]
  - Eye infection [Not Recovered/Not Resolved]
  - Eye irritation [Unknown]
  - Product dose omission issue [Unknown]
  - Malaise [Unknown]

NARRATIVE: CASE EVENT DATE: 20240209
